FAERS Safety Report 16553266 (Version 2)
Quarter: 2019Q3

REPORT INFORMATION
  Report Type: Spontaneous
  Country: PL (occurrence: PL)
  Receive Date: 20190710
  Receipt Date: 20190715
  Transmission Date: 20191004
  Serious: Yes (Other)
  Sender: FDA-Public Use
  Company Number: PL-BAUSCH-BL-2019-019454

PATIENT
  Age: 51 Year
  Sex: Female

DRUGS (8)
  1. FONDAPARINUX [Concomitant]
     Active Substance: FONDAPARINUX
     Indication: EMBOLISM
     Dosage: UNK
  2. METRONIDAZOLE. [Concomitant]
     Active Substance: METRONIDAZOLE
     Indication: CLOSTRIDIUM DIFFICILE INFECTION
  3. HYDROCHLOROTHIAZIDE. [Concomitant]
     Active Substance: HYDROCHLOROTHIAZIDE
     Indication: DIURETIC THERAPY
  4. ACICLOVIR [Suspect]
     Active Substance: ACYCLOVIR
     Indication: HERPES ZOSTER
     Route: 065
  5. ALBUMIN INFUSION [Concomitant]
     Indication: HYPOALBUMINAEMIA
  6. FUROSEMIDE. [Concomitant]
     Active Substance: FUROSEMIDE
     Indication: DIURETIC THERAPY
  7. ACENOCOUMAROL [Concomitant]
     Active Substance: ACENOCOUMAROL
     Indication: EMBOLISM
  8. TORASEMIDE [Concomitant]
     Active Substance: TORSEMIDE
     Indication: DIURETIC THERAPY

REACTIONS (1)
  - Renal impairment [Recovered/Resolved]
